FAERS Safety Report 13061046 (Version 2)
Quarter: 2016Q4

REPORT INFORMATION
  Report Type: Spontaneous
  Country: US (occurrence: US)
  Receive Date: 20161226
  Receipt Date: 20161226
  Transmission Date: 20170207
  Serious: Yes (Other)
  Sender: FDA-Public Use
  Company Number: US-CIPLA (EU) LIMITED-2016US23678

PATIENT

DRUGS (2)
  1. SERTRALINE [Suspect]
     Active Substance: SERTRALINE HYDROCHLORIDE
     Indication: DEPRESSION
  2. SERTRALINE [Suspect]
     Active Substance: SERTRALINE HYDROCHLORIDE
     Indication: ANXIETY
     Dosage: 50 MG, QD
     Route: 048
     Dates: start: 201609

REACTIONS (5)
  - Dyskinesia [Unknown]
  - Depression [Unknown]
  - Lupus-like syndrome [Unknown]
  - Emotional disorder [Unknown]
  - Aggression [Unknown]

NARRATIVE: CASE EVENT DATE: 20161010
